FAERS Safety Report 14492565 (Version 1)
Quarter: 2018Q1

REPORT INFORMATION
  Report Type: Spontaneous
  Country: US (occurrence: US)
  Receive Date: 20180205
  Receipt Date: 20180205
  Transmission Date: 20180509
  Serious: Yes (Hospitalization)
  Sender: FDA-Public Use
  Company Number: None

PATIENT
  Age: 57 Year
  Sex: Female

DRUGS (7)
  1. DOCUSATE [Concomitant]
     Active Substance: DOCUSATE
  2. PROTONIX [Concomitant]
     Active Substance: PANTOPRAZOLE SODIUM
  3. ROBAXIN [Concomitant]
     Active Substance: METHOCARBAMOL
  4. MORPHINE [Concomitant]
     Active Substance: MORPHINE
  5. NEURONTIN [Concomitant]
     Active Substance: GABAPENTIN
  6. CAPECITABINE. [Suspect]
     Active Substance: CAPECITABINE
     Indication: CHOLANGIOCARCINOMA
     Dosage: ?          OTHER FREQUENCY:UNK;?
     Route: 065
  7. EFFEXOR [Concomitant]
     Active Substance: VENLAFAXINE HYDROCHLORIDE

REACTIONS (1)
  - Hospitalisation [None]

NARRATIVE: CASE EVENT DATE: 20180101
